FAERS Safety Report 23745084 (Version 1)
Quarter: 2024Q2

REPORT INFORMATION
  Report Type: Spontaneous
  Country: FR (occurrence: FR)
  Receive Date: 20240416
  Receipt Date: 20240416
  Transmission Date: 20240716
  Serious: No
  Sender: FDA-Public Use
  Company Number: FR-Blueprint Medicines Corporation-SO-FR-2024-000761

PATIENT
  Sex: Female
  Weight: 123 kg

DRUGS (4)
  1. AVAPRITINIB [Suspect]
     Active Substance: AVAPRITINIB
     Indication: Advanced systemic mastocytosis
     Route: 065
     Dates: start: 20220930
  2. AVAPRITINIB [Suspect]
     Active Substance: AVAPRITINIB
     Route: 065
     Dates: end: 20240214
  3. VALACYCLOVIR HYDROCHLORIDE [Concomitant]
     Active Substance: VALACYCLOVIR HYDROCHLORIDE
     Indication: Prophylaxis
     Route: 065
     Dates: start: 20210601
  4. EBASTINE [Concomitant]
     Active Substance: EBASTINE
     Indication: Product used for unknown indication
     Route: 065
     Dates: start: 20210601

REACTIONS (1)
  - Disease progression [Unknown]
